FAERS Safety Report 20134096 (Version 1)
Quarter: 2021Q4

REPORT INFORMATION
  Report Type: Spontaneous
  Country: FR (occurrence: FR)
  Receive Date: 20211201
  Receipt Date: 20211201
  Transmission Date: 20220303
  Serious: Yes (Hospitalization, Other)
  Sender: FDA-Public Use
  Company Number: FR-ABBVIE-21K-056-4180275-00

PATIENT
  Age: 33 Year
  Sex: Male

DRUGS (5)
  1. DEPAKOTE [Suspect]
     Active Substance: DIVALPROEX SODIUM
     Indication: Drug abuse
     Route: 048
     Dates: start: 20200716, end: 20200716
  2. TRIMEPRAZINE [Suspect]
     Active Substance: TRIMEPRAZINE
     Indication: Drug abuse
     Dosage: TOTAL (50 TABLETS OF 5MG)
     Route: 048
     Dates: start: 20200716, end: 20200716
  3. CYAMEMAZINE [Suspect]
     Active Substance: CYAMEMAZINE
     Indication: Drug abuse
     Route: 048
     Dates: start: 20200716, end: 20200716
  4. ALCOHOL [Suspect]
     Active Substance: ALCOHOL
     Indication: Alcohol use
     Route: 048
     Dates: start: 20200716, end: 20200716
  5. COCAINE [Suspect]
     Active Substance: COCAINE
     Indication: Drug abuse
     Route: 065
     Dates: start: 20200716, end: 20200716

REACTIONS (4)
  - Mydriasis [Recovered/Resolved]
  - Drug abuse [Unknown]
  - Disturbance in attention [Recovered/Resolved]
  - Aggression [Recovered/Resolved]

NARRATIVE: CASE EVENT DATE: 20200716
